FAERS Safety Report 9748280 (Version 1)
Quarter: 2013Q4

REPORT INFORMATION
  Report Type: Spontaneous
  Country: CH (occurrence: None)
  Receive Date: 20131209
  Receipt Date: 20131209
  Transmission Date: 20140711
  Serious: Yes (Congenital Anomaly, Other)
  Sender: FDA-Public Use
  Company Number: 2013341695

PATIENT
  Sex: 0

DRUGS (8)
  1. FRAGMIN [Suspect]
     Route: 064
     Dates: start: 20130702
  2. DIOVAN [Suspect]
     Indication: ESSENTIAL HYPERTENSION
     Route: 064
     Dates: end: 2013
  3. ADALAT [Suspect]
     Indication: ESSENTIAL HYPERTENSION
     Route: 064
     Dates: start: 2013
  4. TRANDATE [Suspect]
     Indication: HYPERTENSION
     Route: 064
     Dates: start: 20130703, end: 20130713
  5. MEPHAMESON [Suspect]
     Route: 064
     Dates: start: 20130702, end: 20130702
  6. ELOCOM [Suspect]
     Indication: DERMATITIS ATOPIC
     Route: 064
     Dates: start: 20130702, end: 20130713
  7. ?DESOXYN [Suspect]
     Dates: start: 20130710
  8. ALUCOL [Suspect]
     Route: 064
     Dates: start: 20130709, end: 20130709

REACTIONS (15)
  - Exposure during pregnancy [None]
  - Premature baby [None]
  - Neonatal respiratory distress syndrome [None]
  - Patent ductus arteriosus [None]
  - Anaemia neonatal [None]
  - Hyperbilirubinaemia [None]
  - Hypoglycaemia neonatal [None]
  - Inguinal hernia [None]
  - Congenital genitourinary abnormality [None]
  - Retinopathy [None]
  - Tracheomalacia [None]
  - Phlebitis [None]
  - Bone disorder [None]
  - Cytomegalovirus infection [None]
  - Caesarean section [None]
